FAERS Safety Report 9832283 (Version 2)
Quarter: 2014Q2

REPORT INFORMATION
  Report Type: Report from Study
  Country: US (occurrence: US)
  Receive Date: 20140121
  Receipt Date: 20140410
  Transmission Date: 20141212
  Serious: Yes (Other)
  Sender: FDA-Public Use
  Company Number: US-BRISTOL-MYERS SQUIBB COMPANY-20001012

PATIENT
  Age: 50 Year
  Sex: Female

DRUGS (2)
  1. ABATACEPT SUBQ INJECTION 125MG/ML [Suspect]
     Indication: RHEUMATOID ARTHRITIS
     Dosage: LAST INJECTION ON 05JAN2014?DRUG INTERR IN SEP2013
     Route: 058
  2. ARAVA [Concomitant]

REACTIONS (5)
  - Arthropathy [Unknown]
  - Nausea [Unknown]
  - Hyperhidrosis [Unknown]
  - Headache [Unknown]
  - Rash pruritic [Recovered/Resolved]
